FAERS Safety Report 18570358 (Version 1)
Quarter: 2020Q4

REPORT INFORMATION
  Report Type: Report from Study
  Country: PL (occurrence: PL)
  Receive Date: 20201202
  Receipt Date: 20201202
  Transmission Date: 20210114
  Serious: Yes (Other)
  Sender: FDA-Public Use
  Company Number: PL-GW PHARMA-201806PLGW0195

PATIENT

DRUGS (5)
  1. LEVETIRACETAM. [Concomitant]
     Active Substance: LEVETIRACETAM
     Indication: TUBEROUS SCLEROSIS COMPLEX
     Dosage: 1500 MILLIGRAM, BID
     Route: 065
  2. EPIDIOLEX [Suspect]
     Active Substance: CANNABIDIOL
     Indication: TUBEROUS SCLEROSIS COMPLEX
     Dosage: 25MG/KG, 1900 MILLIGRAM, QD
     Route: 048
     Dates: start: 20180601, end: 20180621
  3. EPIDIOLEX [Suspect]
     Active Substance: CANNABIDIOL
     Dosage: 1520 MILLIGRAM, QD
     Route: 048
     Dates: start: 20180622, end: 20180627
  4. TRILEPTAL [Concomitant]
     Active Substance: OXCARBAZEPINE
     Indication: TUBEROUS SCLEROSIS COMPLEX
     Dosage: 2100 MILLIGRAM, QD, 900 MG AM + 1200 MG PM
     Route: 065
  5. DEPAKINE CHRONO [Concomitant]
     Active Substance: VALPROATE SODIUM
     Indication: TUBEROUS SCLEROSIS COMPLEX
     Dosage: 800 MILLIGRAM, BID
     Route: 065

REACTIONS (1)
  - Liver injury [Recovered/Resolved]

NARRATIVE: CASE EVENT DATE: 20180626
